FAERS Safety Report 8467775-6 (Version None)
Quarter: 2012Q2

REPORT INFORMATION
  Report Type: 
  Country: None (occurrence: None)
  Receive Date: 20120626
  Receipt Date: 20120619
  Transmission Date: 20120825
  Serious: Yes (Hospitalization)
  Sender: FDA-Public Use
  Company Number: US-CELGENEUS-163-21880-12062749

PATIENT
  Sex: Female

DRUGS (9)
  1. REVLIMID [Suspect]
     Indication: MULTIPLE MYELOMA
     Dosage: 25 MILLIGRAM
     Route: 048
     Dates: start: 20120101
  2. DEXAMETHASONE [Concomitant]
     Route: 065
  3. ASPIRIN [Concomitant]
     Route: 065
  4. FISH OIL [Concomitant]
     Route: 065
  5. SPIRIVA [Concomitant]
     Route: 065
  6. VYTORIN [Concomitant]
     Route: 065
  7. CYCLOBENZAPRINE HCL [Concomitant]
     Route: 065
  8. VITAMIN D [Concomitant]
     Route: 065
  9. ACYCLOVIR [Concomitant]
     Route: 065

REACTIONS (1)
  - RENAL DISORDER [None]
